FAERS Safety Report 4633033-0 (Version None)
Quarter: 2005Q2

REPORT INFORMATION
  Report Type: 
  Country: None (occurrence: None)
  Receive Date: 20050412
  Receipt Date: 20050401
  Transmission Date: 20051028
  Serious: Yes (Other)
  Sender: FDA-Public Use
  Company Number: DE-BRISTOL-MYERS SQUIBB COMPANY-12919726

PATIENT

DRUGS (2)
  1. VM-26 [Suspect]
  2. ACNU [Suspect]

REACTIONS (1)
  - CARDIAC FAILURE [None]
